FAERS Safety Report 15969264 (Version 1)
Quarter: 2019Q1

REPORT INFORMATION
  Report Type: Spontaneous
  Country: IN (occurrence: IN)
  Receive Date: 20190215
  Receipt Date: 20190215
  Transmission Date: 20190418
  Serious: Yes (Other)
  Sender: FDA-Public Use
  Company Number: IN-LANNETT COMPANY, INC.-IN-2019LAN000146

PATIENT
  Age: 44 Year
  Sex: Female

DRUGS (8)
  1. RIFAMPIN. [Suspect]
     Active Substance: RIFAMPIN
     Indication: SERPIGINOUS CHOROIDITIS
     Dosage: UNK (FOR FIRST 2 MONTHS)
     Route: 065
  2. PYRAZINAMIDE. [Suspect]
     Active Substance: PYRAZINAMIDE
     Indication: SERPIGINOUS CHOROIDITIS
     Dosage: 25-30 MG/KG, QD (FOR FIRST 2 MONTHS)
     Route: 065
  3. RIFAMPIN. [Suspect]
     Active Substance: RIFAMPIN
     Dosage: UNK (CONTINUED FOR ANOTHER 7 MONTHS)
     Route: 065
  4. PREDNISOLONE ACETATE. [Suspect]
     Active Substance: PREDNISOLONE ACETATE
     Indication: SERPIGINOUS CHOROIDITIS
     Dosage: 1 MG/KG, UNK
     Route: 048
  5. ISONIAZID. [Suspect]
     Active Substance: ISONIAZID
     Indication: SERPIGINOUS CHOROIDITIS
     Dosage: 5 MG/KG, QD (FOR FIRST 2 MONTHS)
     Route: 065
  6. ISONIAZID. [Suspect]
     Active Substance: ISONIAZID
     Dosage: 5 MG/KG, QD (CONTINUED FOR ANOTHER 7 MONTHS)
     Route: 065
  7. ETHAMBUTOL [Suspect]
     Active Substance: ETHAMBUTOL HYDROCHLORIDE
     Indication: SERPIGINOUS CHOROIDITIS
     Dosage: 15 MG/KG, QD (FOR FIRST 2 MONTHS)
     Route: 065
  8. PREDNISOLONE ACETATE. [Suspect]
     Active Substance: PREDNISOLONE ACETATE
     Dosage: 1 MG/KG, (TAPERED OFF OVER A PERIOD OF 4?6 WEEKS)
     Route: 048

REACTIONS (1)
  - Serpiginous choroiditis [Recovering/Resolving]
